FAERS Safety Report 19471290 (Version 1)
Quarter: 2021Q2

REPORT INFORMATION
  Report Type: Spontaneous
  Country: US (occurrence: US)
  Receive Date: 20210628
  Receipt Date: 20210628
  Transmission Date: 20210717
  Serious: No
  Sender: FDA-Public Use
  Company Number: US-009507513-2106USA005754

PATIENT
  Age: 59 Year
  Sex: Male

DRUGS (3)
  1. MITOMYCIN. [Concomitant]
     Active Substance: MITOMYCIN
     Indication: ANAL SQUAMOUS CELL CARCINOMA
  2. KEYTRUDA [Suspect]
     Active Substance: PEMBROLIZUMAB
     Indication: ANAL SQUAMOUS CELL CARCINOMA
     Dosage: UNK
  3. FLUOROURACIL. [Concomitant]
     Active Substance: FLUOROURACIL
     Indication: ANAL SQUAMOUS CELL CARCINOMA

REACTIONS (1)
  - Product use in unapproved indication [Unknown]
